FAERS Safety Report 16313662 (Version 2)
Quarter: 2019Q2

REPORT INFORMATION
  Report Type: Spontaneous
  Country: US (occurrence: US)
  Receive Date: 20190515
  Receipt Date: 20190617
  Transmission Date: 20190711
  Serious: No
  Sender: FDA-Public Use
  Company Number: US-PFIZER INC-2019196466

PATIENT
  Age: 75 Year
  Sex: Female
  Weight: 68.27 kg

DRUGS (1)
  1. FLECTOR [Suspect]
     Active Substance: DICLOFENAC EPOLAMINE
     Indication: BACK PAIN
     Dosage: ONE PATCH PUT ON HER LOWER BACK EVERY DAY
     Route: 062

REACTIONS (3)
  - Renal disorder [Unknown]
  - Therapeutic product effect incomplete [Unknown]
  - Product dose omission [Unknown]
